FAERS Safety Report 13702803 (Version 2)
Quarter: 2017Q3

REPORT INFORMATION
  Report Type: Report from Study
  Country: US (occurrence: US)
  Receive Date: 20170629
  Receipt Date: 20170706
  Transmission Date: 20171127
  Serious: Yes (Hospitalization)
  Sender: FDA-Public Use
  Company Number: US-JNJFOC-20170519809

PATIENT
  Age: 92 Year
  Sex: Male

DRUGS (21)
  1. ASPIRIN. [Concomitant]
     Active Substance: ASPIRIN
     Dosage: 81
  2. MIRALAX [Concomitant]
     Active Substance: POLYETHYLENE GLYCOL 3350
  3. FLOMAX [Concomitant]
     Active Substance: TAMSULOSIN HYDROCHLORIDE
  4. PREDNISONE. [Concomitant]
     Active Substance: PREDNISONE
  5. FLUTICASONE PROPIONATE W/SALMETEROL XINAFOATE [Concomitant]
     Active Substance: FLUTICASONE PROPIONATE\SALMETEROL XINAFOATE
  6. IMBRUVICA [Suspect]
     Active Substance: IBRUTINIB
     Indication: CHRONIC LYMPHOCYTIC LEUKAEMIA
     Route: 048
     Dates: start: 20170511, end: 2017
  7. LASIX [Concomitant]
     Active Substance: FUROSEMIDE
  8. KLOR-CON [Concomitant]
     Active Substance: POTASSIUM CHLORIDE
  9. ZOLOFT [Concomitant]
     Active Substance: SERTRALINE HYDROCHLORIDE
  10. VITAMIN B12 [Concomitant]
     Active Substance: CYANOCOBALAMIN
  11. CARDIZEM [Concomitant]
     Active Substance: DILTIAZEM HYDROCHLORIDE
  12. COLACE [Concomitant]
     Active Substance: DOCUSATE SODIUM
  13. FINASTERIDE. [Concomitant]
     Active Substance: FINASTERIDE
  14. ATORVASTATIN CALCIUM. [Concomitant]
     Active Substance: ATORVASTATIN CALCIUM
  15. SYNTHROID [Concomitant]
     Active Substance: LEVOTHYROXINE SODIUM
  16. METOCLOPRAM [Concomitant]
     Active Substance: METOCLOPRAMIDE
  17. PROTONIX [Concomitant]
     Active Substance: PANTOPRAZOLE SODIUM
  18. ZOCOR [Concomitant]
     Active Substance: SIMVASTATIN
  19. SALBUTAMOL [Concomitant]
     Active Substance: ALBUTEROL
  20. FAMCICLOVIR. [Concomitant]
     Active Substance: FAMCICLOVIR
  21. FOLIC ACID. [Concomitant]
     Active Substance: FOLIC ACID

REACTIONS (15)
  - Hospitalisation [Unknown]
  - Diarrhoea [Recovering/Resolving]
  - Incorrect dose administered [Unknown]
  - Adverse drug reaction [Unknown]
  - Mouth swelling [Not Recovered/Not Resolved]
  - Screaming [Unknown]
  - Off label use [Unknown]
  - Lymphadenopathy [Not Recovered/Not Resolved]
  - Pain [Recovering/Resolving]
  - Nausea [Unknown]
  - Constipation [Recovered/Resolved]
  - Muscle spasms [Unknown]
  - Vomiting [Recovering/Resolving]
  - Abdominal pain [Recovered/Resolved]
  - Haematuria [Not Recovered/Not Resolved]

NARRATIVE: CASE EVENT DATE: 2017
